FAERS Safety Report 21499049 (Version 4)
Quarter: 2024Q4

REPORT INFORMATION
  Report Type: Report from Study
  Country: US (occurrence: US)
  Receive Date: 20221024
  Receipt Date: 20241202
  Transmission Date: 20250115
  Serious: Yes (Other)
  Sender: UCB
  Company Number: US-UCBSA-2022061339

PATIENT
  Age: 13 Year
  Sex: Female
  Weight: 43.2 kg

DRUGS (4)
  1. FINTEPLA [Suspect]
     Active Substance: FENFLURAMINE
     Indication: Lennox-Gastaut syndrome
     Dosage: 0.2MG/KG/DAY
     Dates: start: 20211110, end: 20211117
  2. FINTEPLA [Suspect]
     Active Substance: FENFLURAMINE
     Dosage: 0.4MG/KG/DAY
     Dates: start: 20211118, end: 20211124
  3. FINTEPLA [Suspect]
     Active Substance: FENFLURAMINE
     Dosage: 0.6MG/KG/DAY
     Dates: start: 20211125
  4. FINTEPLA [Suspect]
     Active Substance: FENFLURAMINE
     Dosage: 5.9 MILLILITER, 2X/DAY (BID)
     Dates: start: 20211214

REACTIONS (1)
  - Echocardiogram abnormal [Not Recovered/Not Resolved]

NARRATIVE: CASE EVENT DATE: 20221005
